FAERS Safety Report 17900212 (Version 1)
Quarter: 2020Q2

REPORT INFORMATION
  Report Type: Report from Study
  Country: IT (occurrence: IT)
  Receive Date: 20200616
  Receipt Date: 20200616
  Transmission Date: 20200714
  Serious: Yes (Other)
  Sender: FDA-Public Use
  Company Number: IT-TEVA-2020-IT-1247927

PATIENT
  Age: 87 Year
  Sex: Male

DRUGS (6)
  1. SOLDESAM [Concomitant]
     Active Substance: DEXAMETHASONE
     Dosage: 64 GTT
  2. INSULIN LISPRO [Concomitant]
     Active Substance: INSULIN LISPRO
  3. TOUJEO [Concomitant]
     Active Substance: INSULIN GLARGINE
  4. TARGIN [Concomitant]
     Active Substance: NALOXONE HYDROCHLORIDE\OXYCODONE HYDROCHLORIDE
  5. LORAZEPAM. [Suspect]
     Active Substance: LORAZEPAM
     Indication: PALLIATIVE CARE
     Dates: start: 20191110, end: 20191110
  6. OMEPRAZEN [Concomitant]
     Active Substance: OMEPRAZOLE

REACTIONS (1)
  - Loss of consciousness [Recovering/Resolving]

NARRATIVE: CASE EVENT DATE: 20191110
